FAERS Safety Report 15631294 (Version 1)
Quarter: 2018Q4

REPORT INFORMATION
  Report Type: Spontaneous
  Country: GB (occurrence: GB)
  Receive Date: 20181119
  Receipt Date: 20181119
  Transmission Date: 20190205
  Serious: Yes (Other)
  Sender: FDA-Public Use
  Company Number: GB-AUROBINDO-AUR-APL-2018-055606

PATIENT
  Sex: Male

DRUGS (8)
  1. LITHIUM. [Suspect]
     Active Substance: LITHIUM
     Dosage: UNK
     Route: 065
     Dates: start: 2018
  2. SODIUM VALPROATE [Suspect]
     Active Substance: VALPROATE SODIUM
     Indication: BIPOLAR DISORDER
     Dosage: 3 GRAM, ONCE A DAY
     Route: 065
  3. OLANZAPINE. [Suspect]
     Active Substance: OLANZAPINE
     Indication: BIPOLAR DISORDER
     Dosage: 30 MILLIGRAM, ONCE A DAY
     Route: 065
  4. LITHIUM. [Suspect]
     Active Substance: LITHIUM
     Dosage: 400 MILLIGRAM, ONCE A DAY
     Route: 065
     Dates: start: 2018
  5. HALOPERIDOL. [Suspect]
     Active Substance: HALOPERIDOL
     Indication: BIPOLAR DISORDER
     Dosage: 20 MILLIGRAM, ONCE A DAY
     Route: 065
     Dates: start: 2018
  6. HALOPERIDOL. [Suspect]
     Active Substance: HALOPERIDOL
     Dosage: UNK
     Route: 065
     Dates: start: 201807
  7. HALOPERIDOL. [Suspect]
     Active Substance: HALOPERIDOL
     Dosage: 5 MG MAX TO 20 MG/DAY (1)
     Route: 065
  8. LITHIUM. [Suspect]
     Active Substance: LITHIUM
     Indication: BIPOLAR DISORDER
     Dosage: 600 MILLIGRAM, ONCE A DAY
     Route: 065

REACTIONS (1)
  - Drug ineffective [Unknown]
